FAERS Safety Report 16316723 (Version 1)
Quarter: 2019Q2

REPORT INFORMATION
  Report Type: Spontaneous
  Country: FR (occurrence: FR)
  Receive Date: 20190515
  Receipt Date: 20190515
  Transmission Date: 20190711
  Serious: Yes (Hospitalization)
  Sender: FDA-Public Use
  Company Number: FR-009507513-1905FRA005691

PATIENT
  Age: 69 Year
  Sex: Female
  Weight: 51 kg

DRUGS (9)
  1. MAGNESIUM (UNSPECIFIED) [Suspect]
     Active Substance: MAGNESIUM
     Indication: PREMEDICATION
     Dosage: UNKNOWN
     Route: 042
     Dates: start: 20190306, end: 20190417
  2. LEDERFOLINE [Suspect]
     Active Substance: LEUCOVORIN CALCIUM
     Indication: COLON CANCER
     Dosage: 600 MILLIGRAM, CYCLICAL
     Route: 042
     Dates: start: 20190306, end: 20190417
  3. CORTANCYL [Suspect]
     Active Substance: PREDNISONE
     Indication: PREMEDICATION
     Dosage: UNKNOWN
     Route: 048
     Dates: start: 20190417, end: 20190417
  4. EMEND [Suspect]
     Active Substance: APREPITANT
     Indication: PREMEDICATION
     Dosage: UNKNOWN
     Route: 048
     Dates: start: 20190306, end: 20190417
  5. CALCIUM ACETATE. [Suspect]
     Active Substance: CALCIUM ACETATE
     Indication: PREMEDICATION
     Dosage: INCONNUE
     Route: 042
     Dates: start: 20190306, end: 20190417
  6. FLUOROURACIL. [Suspect]
     Active Substance: FLUOROURACIL
     Indication: COLON CANCER
     Dosage: 2200 MILLIGRAM, CYCLICAL
     Route: 042
     Dates: start: 20190306, end: 20190417
  7. SETOFILM [Suspect]
     Active Substance: ONDANSETRON
     Indication: PREMEDICATION
     Dosage: UNKNOWN
     Route: 048
     Dates: start: 20190306, end: 20190417
  8. OXALIPLATIN. [Suspect]
     Active Substance: OXALIPLATIN
     Indication: COLON CANCER
     Dosage: 135 MILLIGRAM, CYCLICAL; SOLUTION TO DILUTE FOR INFUSION
     Route: 013
     Dates: start: 20190306, end: 20190417
  9. AVASTIN [Suspect]
     Active Substance: BEVACIZUMAB
     Indication: COLON CANCER
     Dosage: 250 MILLIGRAM, CYCLICAL; SOLUTION TO DILUTE FOR INFUSION
     Route: 042
     Dates: start: 20190320, end: 20190417

REACTIONS (1)
  - Thrombocytopenic purpura [Recovering/Resolving]

NARRATIVE: CASE EVENT DATE: 20190418
